FAERS Safety Report 11777030 (Version 1)
Quarter: 2015Q4

REPORT INFORMATION
  Report Type: Spontaneous
  Country: US (occurrence: None)
  Receive Date: 20151124
  Receipt Date: 20151124
  Transmission Date: 20160304
  Serious: Yes (Disabling, Other)
  Sender: FDA-Public Use
  Company Number: None

PATIENT
  Age: 55 Year
  Sex: Female
  Weight: 77.11 kg

DRUGS (8)
  1. ENALAPRIL [Concomitant]
     Active Substance: ENALAPRIL
  2. EPIPEN [Concomitant]
     Active Substance: EPINEPHRINE
  3. ALBUTEROL. [Concomitant]
     Active Substance: ALBUTEROL
  4. PROLIA [Suspect]
     Active Substance: DENOSUMAB
     Indication: OSTEOPOROSIS
     Dosage: ONCE EVERY 6 MONTH
     Route: 030
  5. SINGULAR NASCOBAL [Concomitant]
  6. VALTREX [Concomitant]
     Active Substance: VALACYCLOVIR HYDROCHLORIDE
  7. COLCHICINE. [Concomitant]
     Active Substance: COLCHICINE
  8. XYZAL [Concomitant]
     Active Substance: LEVOCETIRIZINE DIHYDROCHLORIDE

REACTIONS (15)
  - Chest pain [None]
  - Headache [None]
  - Forearm fracture [None]
  - Bone pain [None]
  - Feeling abnormal [None]
  - Eczema [None]
  - Renal pain [None]
  - Blood urine present [None]
  - Lower limb fracture [None]
  - Vomiting [None]
  - Activities of daily living impaired [None]
  - Irritable bowel syndrome [None]
  - Hyperhidrosis [None]
  - Muscle spasms [None]
  - Tremor [None]

NARRATIVE: CASE EVENT DATE: 20150619
